FAERS Safety Report 7202207-7 (Version None)
Quarter: 2010Q4

REPORT INFORMATION
  Report Type: 
  Country: None (occurrence: None)
  Receive Date: 20101229
  Receipt Date: 20101227
  Transmission Date: 20110411
  Serious: Yes (Hospitalization)
  Sender: FDA-Public Use
  Company Number: IT-BRISTOL-MYERS SQUIBB COMPANY-15432529

PATIENT
  Age: 71 Year
  Sex: Male

DRUGS (8)
  1. COUMADIN [Suspect]
     Indication: ATRIAL FIBRILLATION
     Dates: start: 20070808, end: 20101202
  2. ENAPREN [Concomitant]
     Route: 048
  3. LASIX [Concomitant]
     Route: 048
  4. CARDIOASPIRIN [Concomitant]
     Route: 048
  5. KANRENOL [Concomitant]
     Route: 048
  6. PARIET [Concomitant]
     Route: 048
  7. SIVASTIN [Concomitant]
     Route: 048
  8. LOPRESSOR [Concomitant]
     Route: 048

REACTIONS (1)
  - CEREBROVASCULAR ACCIDENT [None]
